FAERS Safety Report 5840776-X (Version None)
Quarter: 2008Q3

REPORT INFORMATION
  Report Type: 
  Country: None (occurrence: None)
  Receive Date: 20080811
  Receipt Date: 20080730
  Transmission Date: 20090109
  Serious: Yes (Hospitalization)
  Sender: FDA-Public Use
  Company Number: FR-WYE-H05474608

PATIENT
  Age: 79 Year
  Sex: Female

DRUGS (4)
  1. INIPOMP [Suspect]
     Indication: GASTRIC HAEMORRHAGE
     Route: 042
  2. INIPOMP [Interacting]
     Route: 042
  3. OCTREOTIDE ACETATE [Interacting]
     Indication: GASTRIC HAEMORRHAGE
     Route: 065
  4. COLESTYRAMINE [Interacting]
     Indication: PRURITUS
     Dosage: UNKNOWN
     Route: 065

REACTIONS (2)
  - BEZOAR [None]
  - DRUG INTERACTION [None]
